FAERS Safety Report 23298523 (Version 4)
Quarter: 2024Q1

REPORT INFORMATION
  Report Type: Report from Study
  Country: CH (occurrence: CH)
  Receive Date: 20231214
  Receipt Date: 20240112
  Transmission Date: 20240410
  Serious: Yes (Hospitalization)
  Sender: FDA-Public Use
  Company Number: CH-ABBVIE-5535854

PATIENT
  Sex: Female

DRUGS (7)
  1. CARBIDOPA\LEVODOPA [Suspect]
     Active Substance: CARBIDOPA\LEVODOPA
     Indication: Parkinson^s disease
     Dosage: MD: 7.5ML, CRD: 3.7ML, CRN: 2.5 ML/H, ED: 3.0 ML?FREQUENCY TEXT: 24H THERAPY
     Route: 050
     Dates: start: 20230503, end: 20230614
  2. CARBIDOPA\LEVODOPA [Suspect]
     Active Substance: CARBIDOPA\LEVODOPA
     Dosage: MD: 7.5ML, CRD: 3.8ML, CRN: 2.5 ML/H, ED: 3.0 ML?FREQUENCY TEXT: 24H THERAPY
     Route: 050
     Dates: start: 20230614, end: 202312
  3. CARBIDOPA\LEVODOPA [Suspect]
     Active Substance: CARBIDOPA\LEVODOPA
     Dosage: FREQUENCY TEXT: 24H THERAPY
     Route: 050
     Dates: start: 20180502
  4. CARBIDOPA\LEVODOPA [Suspect]
     Active Substance: CARBIDOPA\LEVODOPA
     Dosage: MD: 7.5ML, CRD: 4.4ML, CRN: 3.0 ML/H, ED: 3.0 ML?FREQUENCY TEXT: 24H THERAPY
     Route: 050
     Dates: start: 20231212
  5. CARBIDOPA\LEVODOPA [Suspect]
     Active Substance: CARBIDOPA\LEVODOPA
     Dosage: MD: 7.5ML, CRD: 4.4ML, CRN: 3.0 ML/H, ED: 3.0 ML?FREQUENCY TEXT: 24H THERAPY
     Route: 050
     Dates: start: 20231210, end: 20231212
  6. CARBIDOPA\LEVODOPA [Suspect]
     Active Substance: CARBIDOPA\LEVODOPA
     Dosage: MD: 7.5ML, CRD: 4.4ML, CRN: 3.0 ML/H, ED: 3.0 ML?FREQUENCY TEXT: 24H THERAPY
     Route: 050
     Dates: start: 202312, end: 20231210
  7. PRAMIPEXOLE [Concomitant]
     Active Substance: PRAMIPEXOLE\PRAMIPEXOLE DIHYDROCHLORIDE
     Indication: Parkinson^s disease

REACTIONS (14)
  - Pathological fracture [Not Recovered/Not Resolved]
  - Device occlusion [Recovered/Resolved]
  - Device occlusion [Recovered/Resolved]
  - Erythema [Unknown]
  - Hallucination [Recovered/Resolved]
  - Restlessness [Recovered/Resolved]
  - Off label use [Recovered/Resolved]
  - Freezing phenomenon [Not Recovered/Not Resolved]
  - Persecutory delusion [Unknown]
  - Pain in extremity [Unknown]
  - Peripheral swelling [Unknown]
  - Limb discomfort [Unknown]
  - Feeling hot [Unknown]
  - Fall [Unknown]

NARRATIVE: CASE EVENT DATE: 20230101
